FAERS Safety Report 15005088 (Version 2)
Quarter: 2018Q3

REPORT INFORMATION
  Report Type: Spontaneous
  Country: US (occurrence: US)
  Receive Date: 20180613
  Receipt Date: 20180905
  Transmission Date: 20181010
  Serious: No
  Sender: FDA-Public Use
  Company Number: US-GLAXOSMITHKLINE-US2018100162

PATIENT
  Age: 65 Year
  Sex: Female

DRUGS (1)
  1. NICODERM CQ [Suspect]
     Active Substance: NICOTINE
     Indication: SMOKING CESSATION THERAPY
     Dosage: 21 UNK, UNK
     Dates: start: 20180514, end: 20180522

REACTIONS (7)
  - Application site pruritus [Recovering/Resolving]
  - Inappropriate schedule of drug administration [Unknown]
  - Product quality issue [Unknown]
  - Application site swelling [Recovering/Resolving]
  - Application site reaction [Not Recovered/Not Resolved]
  - Product administered at inappropriate site [Unknown]
  - Application site erythema [Recovering/Resolving]

NARRATIVE: CASE EVENT DATE: 20180514
